FAERS Safety Report 8970043 (Version 1)
Quarter: 2012Q4

REPORT INFORMATION
  Report Type: 
  Country: US (occurrence: US)
  Receive Date: 20121218
  Receipt Date: 20121218
  Transmission Date: 20130627
  Serious: No
  Sender: FDA-Public Use
  Company Number: US-BRISTOL-MYERS SQUIBB COMPANY-16208134

PATIENT
  Age: 63 Year
  Sex: Female
  Weight: 66 kg

DRUGS (2)
  1. ABILIFY TABS 2 MG [Suspect]
     Indication: POST-TRAUMATIC STRESS DISORDER
     Dosage: 1/2 tab unknown date,1195395A3.
     Route: 048
     Dates: start: 201106, end: 201107
  2. ABILIFY TABS 2 MG [Suspect]
     Indication: DEPRESSION
     Dosage: 1/2 tab unknown date,1195395A3.
     Route: 048
     Dates: start: 201106, end: 201107

REACTIONS (8)
  - Dyspnoea [Unknown]
  - Muscle spasms [Recovered/Resolved]
  - Rash [Unknown]
  - Pharyngeal oedema [Unknown]
  - Heart rate increased [Recovered/Resolved]
  - Urticaria [Unknown]
  - Blood pressure increased [Unknown]
  - Swollen tongue [Recovered/Resolved]
